FAERS Safety Report 9450250 (Version 1)
Quarter: 2013Q3

REPORT INFORMATION
  Report Type: Report from Study
  Country: DE (occurrence: DE)
  Receive Date: 20130809
  Receipt Date: 20130809
  Transmission Date: 20140515
  Serious: Yes (Hospitalization)
  Sender: FDA-Public Use
  Company Number: DE-SANOFI-AVENTIS-2013SA078072

PATIENT
  Age: 60 Year
  Sex: Male
  Weight: 87 kg

DRUGS (6)
  1. MULTAQ [Suspect]
     Indication: ATRIAL FIBRILLATION
     Route: 048
     Dates: start: 20120615, end: 20130108
  2. PLATELET AGGREGATION INHIBITORS [Concomitant]
     Indication: THROMBOSIS PROPHYLAXIS
     Route: 065
     Dates: start: 20120405
  3. ALLOPURINOL [Concomitant]
     Dosage: UNIT CONT:300
  4. METOPROLOL [Concomitant]
     Route: 065
  5. BETA BLOCKING AGENTS [Concomitant]
     Route: 065
     Dates: start: 200512, end: 201206
  6. DIGITALIS [Concomitant]
     Route: 065
     Dates: start: 201203, end: 201206

REACTIONS (1)
  - Atrial fibrillation [Unknown]
